FAERS Safety Report 21707787 (Version 1)
Quarter: 2022Q4

REPORT INFORMATION
  Report Type: Spontaneous
  Country: DE (occurrence: DE)
  Receive Date: 20221209
  Receipt Date: 20221209
  Transmission Date: 20230113
  Serious: Yes (Hospitalization)
  Sender: FDA-Public Use
  Company Number: DE-ADRED-05678-01

PATIENT
  Age: 41 Year
  Sex: Female
  Weight: 84 kg

DRUGS (5)
  1. VALPROIC ACID [Suspect]
     Active Substance: VALPROIC ACID
     Indication: Product used for unknown indication
     Dosage: 300 MILLIGRAM, 1-0-0.5-0
     Route: 065
  2. PERAZINE [Suspect]
     Active Substance: PERAZINE
     Indication: Product used for unknown indication
     Dosage: NK [PRESUMABLY NOT CLASSIFIABLE] MG DISCONTINUED
     Route: 065
  3. ZOPICLONE [Concomitant]
     Active Substance: ZOPICLONE
     Dosage: 7.5 MILLIGRAM, 0-0-0-1
     Route: 065
  4. ALPRAZOLAM [Concomitant]
     Active Substance: ALPRAZOLAM
     Dosage: 0.5 MILLIGRAM, PRN, AS NEEDED
     Route: 065
  5. CANDESARTAN [Concomitant]
     Active Substance: CANDESARTAN
     Dosage: 8 MILLIGRAM, 0.5-0-0.5-0
     Route: 065

REACTIONS (4)
  - Disorientation [Unknown]
  - Panic reaction [Unknown]
  - Nervousness [Unknown]
  - Insomnia [Unknown]
